FAERS Safety Report 5062948-7 (Version None)
Quarter: 2006Q3

REPORT INFORMATION
  Report Type: 
  Country: None (occurrence: None)
  Receive Date: 20060727
  Receipt Date: 20060705
  Transmission Date: 20061208
  Serious: Yes (Other)
  Sender: FDA-Public Use
  Company Number: US-JNJFOC-20060604513

PATIENT
  Sex: Female

DRUGS (1)
  1. REMICADE [Suspect]
     Indication: RHEUMATOID ARTHRITIS

REACTIONS (7)
  - ANXIETY [None]
  - DISCOMFORT [None]
  - INFECTION [None]
  - INSOMNIA [None]
  - PRURITUS [None]
  - RASH [None]
  - SKIN DISORDER [None]
